FAERS Safety Report 5840353-0 (Version None)
Quarter: 2008Q3

REPORT INFORMATION
  Report Type: 
  Country: None (occurrence: None)
  Receive Date: 20080811
  Receipt Date: 20080804
  Transmission Date: 20090109
  Serious: Yes (Hospitalization, Other)
  Sender: FDA-Public Use
  Company Number: US-MERCK-0805USA00718

PATIENT
  Age: 51 Year
  Sex: Female
  Weight: 83 kg

DRUGS (4)
  1. FOSAMAX [Suspect]
     Indication: OSTEOPENIA
     Route: 048
     Dates: start: 20041101, end: 20070301
  2. FOSAMAX [Suspect]
     Route: 048
     Dates: end: 20070104
  3. [THERAPY UNSPECIFIED] [Concomitant]
     Route: 065
     Dates: start: 19870401
  4. FOSAMAX PLUS D [Suspect]
     Indication: OSTEOPENIA
     Route: 065

REACTIONS (9)
  - DEPRESSION [None]
  - HYPERTONIC BLADDER [None]
  - HYPOTHYROIDISM [None]
  - IMPAIRED HEALING [None]
  - LOWER LIMB FRACTURE [None]
  - ORAL INFECTION [None]
  - OSTEOMYELITIS [None]
  - OSTEONECROSIS [None]
  - RECTOCELE [None]
